FAERS Safety Report 5212194-9 (Version None)
Quarter: 2006Q4

REPORT INFORMATION
  Report Type: 
  Country: None (occurrence: None)
  Receive Date: 20061120
  Receipt Date: 20051021
  Transmission Date: 20070319
  Serious: Yes (Other)
  Sender: FDA-Public Use
  Company Number: US-2005-020533

PATIENT
  Age: 58 Year
  Sex: Male
  Weight: 161 kg

DRUGS (2)
  1. ULTRAVIST (PHARMACY BULK) [Suspect]
     Indication: ARTERIOGRAM CORONARY
     Dosage: 150 ML, 1 DOSE, INTRAVENOUS
     Route: 042
     Dates: start: 20050929, end: 20050929
  2. LOPRESSOR [Concomitant]

REACTIONS (3)
  - HYPERSENSITIVITY [None]
  - SWELLING FACE [None]
  - URTICARIA [None]
